FAERS Safety Report 6720409-0 (Version None)
Quarter: 2010Q2

REPORT INFORMATION
  Report Type: 
  Country: None (occurrence: None)
  Receive Date: 20100506
  Receipt Date: 20100430
  Transmission Date: 20101027
  Serious: Yes (Life-Threatening, Hospitalization)
  Sender: FDA-Public Use
  Company Number: WAES 1004USA04801

PATIENT
  Age: 78 Year
  Sex: Male

DRUGS (5)
  1. JANUVIA [Suspect]
     Indication: DIABETES MELLITUS
     Dosage: 25 MG/DAILY, PO
     Route: 048
     Dates: end: 20100424
  2. AMARYL [Suspect]
     Indication: DIABETES MELLITUS
     Dosage: 2 MG/DAILY, PO
     Route: 048
  3. ACTOS [Suspect]
     Indication: DIABETES MELLITUS
     Dosage: 15 MG/DAILY, PO
     Route: 048
  4. ASPIRIN [Concomitant]
  5. PANALDINE [Concomitant]

REACTIONS (1)
  - HYPOGLYCAEMIA [None]
